FAERS Safety Report 6202087-2 (Version None)
Quarter: 2009Q2

REPORT INFORMATION
  Report Type: 
  Country: None (occurrence: None)
  Receive Date: 20090518
  Receipt Date: 20090330
  Transmission Date: 20091009
  Serious: No
  Sender: FDA-Public Use
  Company Number: WAES 0903USA05490

PATIENT
  Age: 59 Year
  Sex: Female

DRUGS (4)
  1. JANUVIA [Suspect]
     Indication: DIABETES MELLITUS
     Dosage: 50 MG/DAILY/PO
     Route: 048
     Dates: start: 20090314, end: 20090327
  2. ACTOS [Concomitant]
  3. LIPITOR [Concomitant]
  4. INSULIN [Concomitant]

REACTIONS (2)
  - BURNING SENSATION [None]
  - PAIN [None]
